FAERS Safety Report 23165103 (Version 1)
Quarter: 2023Q4

REPORT INFORMATION
  Report Type: Spontaneous
  Country: US (occurrence: None)
  Receive Date: 20231108
  Receipt Date: 20231108
  Transmission Date: 20240109
  Serious: No
  Sender: FDA-Public Use
  Company Number: None

PATIENT
  Age: 76 Year
  Sex: Female
  Weight: 78.75 kg

DRUGS (6)
  1. PROLIA [Suspect]
     Active Substance: DENOSUMAB
     Indication: Osteoporosis
     Route: 058
  2. CITALOPRAM [Concomitant]
     Active Substance: CITALOPRAM HYDROBROMIDE
  3. PANTOPRAZOLE [Concomitant]
     Active Substance: PANTOPRAZOLE
  4. MYRBETRIQ [Concomitant]
     Active Substance: MIRABEGRON
  5. CALCIUM [Concomitant]
     Active Substance: CALCIUM
  6. Healthy Eyes Vitamins [Concomitant]

REACTIONS (9)
  - Musculoskeletal pain [None]
  - Osteoarthritis [None]
  - Arthralgia [None]
  - Toothache [None]
  - Arthralgia [None]
  - Pain in extremity [None]
  - Mobility decreased [None]
  - Loss of personal independence in daily activities [None]
  - Condition aggravated [None]

NARRATIVE: CASE EVENT DATE: 20231001
